FAERS Safety Report 12595938 (Version 1)
Quarter: 2016Q3

REPORT INFORMATION
  Report Type: Spontaneous
  Country: US (occurrence: US)
  Receive Date: 20160726
  Receipt Date: 20160726
  Transmission Date: 20161109
  Serious: No
  Sender: FDA-Public Use
  Company Number: US-OREXO US, INC.-ORE201604-000058

PATIENT
  Age: 51 Year
  Sex: Male
  Weight: 108.96 kg

DRUGS (3)
  1. ZUBSOLV [Suspect]
     Active Substance: BUPRENORPHINE HYDROCHLORIDE\NALOXONE HYDROCHLORIDE
     Indication: DRUG DEPENDENCE
     Dosage: 5.7 MG/1.4MG HALF TABLET TWO TIMES A DAY
     Route: 060
     Dates: start: 20150203, end: 20150205
  2. BUPRENORPHINE / NALOXONE DIHYDRATE [Suspect]
     Active Substance: BUPRENORPHINE\NALOXONE
     Indication: DRUG DEPENDENCE
     Dates: start: 20150205, end: 20150207
  3. SUBUTEX [Suspect]
     Active Substance: BUPRENORPHINE HYDROCHLORIDE
     Indication: DRUG DEPENDENCE
     Dates: start: 20150225, end: 20150225

REACTIONS (3)
  - Vomiting [Recovered/Resolved]
  - Oedema peripheral [Recovered/Resolved]
  - Nausea [Recovered/Resolved]

NARRATIVE: CASE EVENT DATE: 20150204
